FAERS Safety Report 8247391-1 (Version None)
Quarter: 2012Q1

REPORT INFORMATION
  Report Type: 
  Country: None (occurrence: None)
  Receive Date: 20120330
  Receipt Date: 20120326
  Transmission Date: 20120608
  Serious: Yes (Death, Hospitalization, Other)
  Sender: FDA-Public Use
  Company Number: US-PFIZER INC-2012041913

PATIENT
  Sex: Female

DRUGS (2)
  1. XALKORI [Suspect]
     Indication: LUNG NEOPLASM MALIGNANT
     Dosage: 250 MG, 2X/DAY
     Route: 048
     Dates: start: 20120127
  2. XALKORI [Suspect]
     Indication: NON-SMALL CELL LUNG CANCER METASTATIC

REACTIONS (14)
  - PULMONARY EMBOLISM [None]
  - NAUSEA [None]
  - DISEASE PROGRESSION [None]
  - BACK PAIN [None]
  - LUNG NEOPLASM MALIGNANT [None]
  - DYSPHAGIA [None]
  - RESPIRATORY FAILURE [None]
  - PNEUMONIA [None]
  - ARTHRALGIA [None]
  - PAIN [None]
  - ATRIAL FIBRILLATION [None]
  - CHRONIC OBSTRUCTIVE PULMONARY DISEASE [None]
  - VOMITING [None]
  - RADIATION PNEUMONITIS [None]
